FAERS Safety Report 20296591 (Version 1)
Quarter: 2022Q1

REPORT INFORMATION
  Report Type: Spontaneous
  Country: GB (occurrence: GB)
  Receive Date: 20220105
  Receipt Date: 20220105
  Transmission Date: 20220424
  Serious: No
  Sender: FDA-Public Use
  Company Number: None

PATIENT

DRUGS (4)
  1. IBUPROFEN [Suspect]
     Active Substance: IBUPROFEN
     Indication: Product used for unknown indication
     Dosage: APPLY 3-4 TIMES/DAY
     Route: 061
     Dates: start: 20210128
  2. COCODAMOL [Concomitant]
     Active Substance: ACETAMINOPHEN\CODEINE PHOSPHATE
     Indication: Ill-defined disorder
     Dosage: TAKE ONE OR TWO UP TO 4 TIMES/DAY WHEN REQUIRED
     Route: 065
     Dates: start: 20210202
  3. FERROUS SULFATE [Concomitant]
     Active Substance: FERROUS SULFATE
     Indication: Ill-defined disorder
     Dosage: TAKE ONE THREE TIMES DAILY
     Route: 065
     Dates: start: 20191128
  4. LEVOTHYROXINE [Concomitant]
     Active Substance: LEVOTHYROXINE
     Indication: Ill-defined disorder
     Dosage: 1 TO BE TAKEN EACH MORNING
     Route: 065
     Dates: start: 20191028

REACTIONS (1)
  - Pain of skin [Recovering/Resolving]

NARRATIVE: CASE EVENT DATE: 20210202
